FAERS Safety Report 16349448 (Version 2)
Quarter: 2019Q3

REPORT INFORMATION
  Report Type: Spontaneous
  Country: JP (occurrence: JP)
  Receive Date: 20190523
  Receipt Date: 20190726
  Transmission Date: 20191004
  Serious: Yes (Death, Hospitalization, Other)
  Sender: FDA-Public Use
  Company Number: JP-BRISTOL-MYERS SQUIBB COMPANY-BMS-2019-048776

PATIENT
  Age: 72 Year
  Sex: Male

DRUGS (4)
  1. FLUOROURACIL. [Concomitant]
     Active Substance: FLUOROURACIL
     Indication: COLON CANCER
     Route: 051
  2. OPDIVO [Suspect]
     Active Substance: NIVOLUMAB
     Indication: COLON CANCER
     Route: 041
  3. LEVOFOLINATE [Concomitant]
     Active Substance: LEVOLEUCOVORIN CALCIUM
     Indication: COLON CANCER
     Route: 051
  4. OXALIPLATIN. [Concomitant]
     Active Substance: OXALIPLATIN
     Indication: COLON CANCER
     Route: 051

REACTIONS (10)
  - Pulmonary haemorrhage [Unknown]
  - Pulmonary congestion [Unknown]
  - Myocarditis [Fatal]
  - Off label use [None]
  - Pneumothorax [Unknown]
  - Oliguria [Unknown]
  - Pulmonary infarction [Unknown]
  - Pulmonary thrombosis [Unknown]
  - Pulmonary necrosis [Unknown]
  - Haematoma [Unknown]
